FAERS Safety Report 9612942 (Version 1)
Quarter: 2013Q4

REPORT INFORMATION
  Report Type: Report from Study
  Country: CA (occurrence: CA)
  Receive Date: 20131010
  Receipt Date: 20131010
  Transmission Date: 20140711
  Serious: Yes (Hospitalization)
  Sender: FDA-Public Use
  Company Number: CA-ROCHE-1285879

PATIENT
  Age: 54 Year
  Sex: Female

DRUGS (10)
  1. TOCILIZUMAB [Suspect]
     Indication: PRODUCT USED FOR UNKNOWN INDICATION
     Route: 042
     Dates: end: 201301
  2. HYDROXIN [Concomitant]
  3. ALENDRONATE [Concomitant]
  4. FOLIC ACID [Concomitant]
  5. MYCOPHENOLATE MOFETIL [Concomitant]
     Route: 065
  6. TRAMADOL [Concomitant]
  7. METHOTREXATE [Concomitant]
  8. PREDNISONE [Concomitant]
  9. RABEPRAZOLE [Concomitant]
  10. MYFORTIC [Concomitant]

REACTIONS (2)
  - Renal failure [Recovering/Resolving]
  - Hypertension [Recovering/Resolving]
